FAERS Safety Report 21298262 (Version 1)
Quarter: 2022Q3

REPORT INFORMATION
  Report Type: Report from Study
  Country: US (occurrence: US)
  Receive Date: 20220906
  Receipt Date: 20220906
  Transmission Date: 20221027
  Serious: Yes (Death, Hospitalization, Other)
  Sender: FDA-Public Use
  Company Number: US-BRISTOL-MYERS SQUIBB COMPANY-2022-099573

PATIENT
  Age: 73 Year
  Sex: Male
  Weight: 90.718 kg

DRUGS (3)
  1. ELIQUIS [Suspect]
     Active Substance: APIXABAN
     Indication: Cerebrovascular accident prophylaxis
     Dosage: DOSE : UNAVAILABLE (NOT PROVIDED);     FREQ : ONE A DAY
     Route: 048
     Dates: start: 2018
  2. METFORMIN [Concomitant]
     Active Substance: METFORMIN HYDROCHLORIDE
     Indication: Product used for unknown indication
     Route: 065
  3. SPYLACTON [Concomitant]
     Indication: Product used for unknown indication
     Route: 065

REACTIONS (4)
  - Cardiac failure congestive [Fatal]
  - Arthropathy [Unknown]
  - Gout [Unknown]
  - Off label use [Unknown]
